FAERS Safety Report 5787659-1 (Version None)
Quarter: 2008Q2

REPORT INFORMATION
  Report Type: 
  Country: None (occurrence: None)
  Receive Date: 20080623
  Receipt Date: 20080623
  Transmission Date: 20081010
  Serious: No
  Sender: FDA-Public Use
  Company Number: None

PATIENT
  Age: 64 Year
  Sex: Male

DRUGS (2)
  1. VIBRAMYCIN [Suspect]
     Indication: ARTHRITIS INFECTIVE
     Dosage: TAKE 5 M -1 TEASPOONFULL TID PO
     Route: 048
     Dates: start: 20080530, end: 20080620
  2. TEKTURNA [Suspect]
     Indication: HYPERTENSION
     Dosage: TAKE 1 TAB AT BEDTIME PO
     Route: 048
     Dates: start: 20080401, end: 20080620

REACTIONS (1)
  - HYPERSENSITIVITY [None]
